FAERS Safety Report 9370753 (Version 2)
Quarter: 2013Q3

REPORT INFORMATION
  Report Type: Spontaneous
  Country: DE (occurrence: DE)
  Receive Date: 20130626
  Receipt Date: 20130722
  Transmission Date: 20140515
  Serious: Yes (Hospitalization, Other)
  Sender: FDA-Public Use
  Company Number: DE-ABBOTT-13P-062-1110092-00

PATIENT
  Age: 29 Year
  Sex: Female
  Weight: 67 kg

DRUGS (3)
  1. NORVIR [Suspect]
     Indication: HIV INFECTION
     Route: 048
     Dates: start: 201001
  2. TRUVADA [Suspect]
     Indication: HIV INFECTION
     Dosage: 200 MG/245 MG
     Route: 048
     Dates: start: 201001
  3. PREZISTA [Suspect]
     Indication: HIV INFECTION
     Route: 048
     Dates: start: 201001

REACTIONS (5)
  - Abortion late [Unknown]
  - Cervical incompetence [Unknown]
  - Placental disorder [Unknown]
  - Premature labour [Unknown]
  - Premature rupture of membranes [Unknown]
